FAERS Safety Report 21848867 (Version 2)
Quarter: 2023Q1

REPORT INFORMATION
  Report Type: Spontaneous
  Country: MX (occurrence: MX)
  Receive Date: 20230111
  Receipt Date: 20230210
  Transmission Date: 20230417
  Serious: Yes (Death, Other)
  Sender: FDA-Public Use
  Company Number: MX-PFIZER INC-PV202300005455

PATIENT
  Age: 21 Year
  Sex: Male

DRUGS (1)
  1. IXIFI [Suspect]
     Active Substance: INFLIXIMAB-QBTX
     Dosage: UNK
     Route: 042
     Dates: start: 2022, end: 20221124

REACTIONS (1)
  - Death [Fatal]
